FAERS Safety Report 10552768 (Version 2)
Quarter: 2014Q4

REPORT INFORMATION
  Report Type: Spontaneous
  Country: US (occurrence: US)
  Receive Date: 20141029
  Receipt Date: 20141029
  Transmission Date: 20150529
  Serious: No
  Sender: FDA-Public Use
  Company Number: US-MYLANLABS-2013S1024375

PATIENT
  Age: 69 Year
  Sex: Male
  Weight: 95.26 kg

DRUGS (3)
  1. CARVEDILOL TABLETS, USP [Suspect]
     Active Substance: CARVEDILOL
     Indication: BLOOD PRESSURE INCREASED
  2. CARVEDILOL TABLETS, USP [Suspect]
     Active Substance: CARVEDILOL
     Indication: CARDIAC DISORDER
  3. CARVEDILOL TABLETS, USP [Suspect]
     Active Substance: CARVEDILOL
     Dosage: 25 MG,QD
     Route: 048
     Dates: start: 20130909, end: 201310

REACTIONS (2)
  - Cardiac flutter [Recovered/Resolved]
  - Drug effect decreased [Recovered/Resolved]

NARRATIVE: CASE EVENT DATE: 201310
